FAERS Safety Report 24608773 (Version 1)
Quarter: 2024Q4

REPORT INFORMATION
  Report Type: Spontaneous
  Country: GR (occurrence: GR)
  Receive Date: 20241112
  Receipt Date: 20241112
  Transmission Date: 20250115
  Serious: Yes (Other)
  Sender: ELI LILLY AND COMPANY
  Company Number: GR-ELI_LILLY_AND_COMPANY-GR202411000305

PATIENT
  Age: 60 Year
  Sex: Female

DRUGS (2)
  1. OLUMIANT [Suspect]
     Active Substance: BARICITINIB
     Indication: Alopecia areata
     Dosage: 4 MG, DAILY
     Route: 048
     Dates: start: 202310
  2. OLUMIANT [Suspect]
     Active Substance: BARICITINIB
     Dosage: 2 MG, DAILY
     Route: 048

REACTIONS (2)
  - White blood cell count decreased [Recovering/Resolving]
  - Alopecia [Not Recovered/Not Resolved]
